FAERS Safety Report 8778392 (Version 3)
Quarter: 2012Q4

REPORT INFORMATION
  Report Type: 
  Country: GB (occurrence: GB)
  Receive Date: 20120911
  Receipt Date: 20121222
  Transmission Date: 20130627
  Serious: Yes (Other)
  Sender: FDA-Public Use
  Company Number: GB-009507513-1209GBR001945

PATIENT
  Age: 15 Year
  Sex: Female

DRUGS (4)
  1. NEXPLANON [Suspect]
     Indication: CONTRACEPTION
     Route: 059
  2. ABILIFY [Interacting]
     Indication: BIPOLAR DISORDER
  3. LAMICTAL [Interacting]
     Indication: BIPOLAR DISORDER
     Dosage: 50 mg, tid
     Route: 048
  4. CETIRIZINE HYDROCHLORIDE [Interacting]
     Indication: SEASONAL ALLERGY
     Route: 048

REACTIONS (6)
  - Abortion spontaneous [Unknown]
  - Drug interaction [Unknown]
  - Exposure during pregnancy [Unknown]
  - Unintended pregnancy [Recovered/Resolved]
  - Metrorrhagia [Unknown]
  - Pregnancy [Recovered/Resolved]
